FAERS Safety Report 16970252 (Version 2)
Quarter: 2019Q4

REPORT INFORMATION
  Report Type: Spontaneous
  Country: BG (occurrence: BG)
  Receive Date: 20191029
  Receipt Date: 20191105
  Transmission Date: 20200122
  Serious: Yes (Other)
  Sender: FDA-Public Use
  Company Number: BG-009507513-1910BGR014982

PATIENT
  Age: 78 Year
  Sex: Male

DRUGS (1)
  1. KEYTRUDA [Suspect]
     Active Substance: PEMBROLIZUMAB
     Indication: TRANSITIONAL CELL CARCINOMA
     Dosage: 16 COURSES
     Dates: start: 20181001, end: 2019

REACTIONS (3)
  - Hypothyroidism [Unknown]
  - Renal failure [Unknown]
  - Autoimmune thyroid disorder [Unknown]

NARRATIVE: CASE EVENT DATE: 2019
